FAERS Safety Report 5279972-1 (Version None)
Quarter: 2007Q1

REPORT INFORMATION
  Report Type: 
  Country: None (occurrence: None)
  Receive Date: 20061215
  Receipt Date: 20060306
  Transmission Date: 20070707
  Serious: Yes (Other)
  Sender: FDA-Public Use
  Company Number: HQWYE180107MAR06

PATIENT
  Age: 66 Year
  Sex: Female

DRUGS (3)
  1. EFFEXOR XR [Suspect]
     Dosage: 112 MG, ORAL
     Route: 048
     Dates: start: 20060201
  2. PRILOSEC [Concomitant]
  3. UNSPECIFIED ANTIHYPERLIPIDEMIC (UNSPECIFIED ANTIHYPERLIPIDEMIC) [Concomitant]

REACTIONS (1)
  - WHITE BLOOD CELL COUNT DECREASED [None]
